FAERS Safety Report 11998403 (Version 2)
Quarter: 2016Q1

REPORT INFORMATION
  Report Type: Report from Study
  Country: CA (occurrence: CA)
  Receive Date: 20160203
  Receipt Date: 20160323
  Transmission Date: 20160526
  Serious: Yes (Other)
  Sender: FDA-Public Use
  Company Number: CA-ROCHE-1687430

PATIENT
  Sex: Male

DRUGS (14)
  1. SPIRONOLACTONE. [Concomitant]
     Active Substance: SPIRONOLACTONE
  2. DICLOFENAC [Concomitant]
     Active Substance: DICLOFENAC
  3. ESBRIET [Suspect]
     Active Substance: PIRFENIDONE
     Indication: IDIOPATHIC PULMONARY FIBROSIS
     Route: 048
     Dates: start: 20151223
  4. ESBRIET [Suspect]
     Active Substance: PIRFENIDONE
     Route: 048
     Dates: start: 20151230
  5. ESBRIET [Suspect]
     Active Substance: PIRFENIDONE
     Route: 048
     Dates: start: 201601
  6. ROSUVASTATIN [Concomitant]
     Active Substance: ROSUVASTATIN
  7. PERINDOPRIL ERBUMINE. [Concomitant]
     Active Substance: PERINDOPRIL ERBUMINE
  8. CALCARB [Concomitant]
  9. ESBRIET [Suspect]
     Active Substance: PIRFENIDONE
     Route: 048
     Dates: start: 20160106
  10. LASIX [Concomitant]
     Active Substance: FUROSEMIDE
  11. PREDNISONE. [Concomitant]
     Active Substance: PREDNISONE
  12. TEMAZEPAM. [Concomitant]
     Active Substance: TEMAZEPAM
  13. AMIODARONE [Concomitant]
     Active Substance: AMIODARONE
  14. CARVEDILOL. [Concomitant]
     Active Substance: CARVEDILOL

REACTIONS (2)
  - Pneumonia [Recovering/Resolving]
  - Dizziness [Not Recovered/Not Resolved]
